FAERS Safety Report 9200346 (Version 1)
Quarter: 2013Q1

REPORT INFORMATION
  Report Type: Spontaneous
  Country: FR (occurrence: FR)
  Receive Date: 20130329
  Receipt Date: 20130329
  Transmission Date: 20140127
  Serious: Yes (Life-Threatening)
  Sender: FDA-Public Use
  Company Number: FR-ASTRAZENECA-2013SE19867

PATIENT
  Age: 1667 Week
  Sex: Female

DRUGS (3)
  1. NAROPEINE [Suspect]
     Route: 030
     Dates: start: 20121205
  2. NAROPEINE [Suspect]
     Route: 058
     Dates: start: 20121207
  3. LEELOO [Suspect]
     Indication: ORAL CONTRACEPTION
     Route: 048
     Dates: start: 201211, end: 201212

REACTIONS (1)
  - Post procedural pulmonary embolism [Recovered/Resolved]
